FAERS Safety Report 10209299 (Version 2)
Quarter: 2014Q2

REPORT INFORMATION
  Report Type: Spontaneous
  Country: IT (occurrence: IT)
  Receive Date: 20140530
  Receipt Date: 20140603
  Transmission Date: 20141212
  Serious: Yes (Hospitalization)
  Sender: FDA-Public Use
  Company Number: PHHY2014IT062777

PATIENT
  Age: 88 Year
  Sex: Female

DRUGS (8)
  1. LORAZEPAM [Suspect]
     Indication: ANXIOLYTIC THERAPY
     Dosage: 20 DRP, QD
     Route: 048
     Dates: start: 20140401, end: 20140402
  2. CITALOPRAM [Suspect]
     Indication: ANTIDEPRESSANT THERAPY
     Dosage: 20 MG, QD
     Route: 048
     Dates: end: 20140402
  3. CARDIOASPIRIN [Concomitant]
     Dosage: 100 MG, UNK
     Route: 048
  4. LYRICA [Concomitant]
     Dosage: 75 MG, UNK
     Route: 048
     Dates: end: 20140402
  5. LANOXIN [Concomitant]
     Dosage: 0.12 MG, UNK
     Route: 048
  6. TAREG [Concomitant]
     Dosage: 80 MG, UNK
     Route: 048
     Dates: end: 20140402
  7. TAREG [Concomitant]
     Dosage: 60 MG, UNK
     Dates: start: 20140416
  8. LANSOPRAZOLE [Concomitant]
     Dosage: 30 MG, UNK
     Route: 048

REACTIONS (4)
  - Disorientation [Recovered/Resolved]
  - Sopor [Recovered/Resolved]
  - Bradyphrenia [Recovered/Resolved]
  - Overdose [Recovered/Resolved]
